FAERS Safety Report 7009104-0 (Version None)
Quarter: 2010Q3

REPORT INFORMATION
  Report Type: 
  Country: None (occurrence: None)
  Receive Date: 20100923
  Receipt Date: 20100917
  Transmission Date: 20110219
  Serious: Yes (Hospitalization)
  Sender: FDA-Public Use
  Company Number: DE-BAYER-201036195GPV

PATIENT
  Age: 50 Year
  Sex: Female
  Weight: 43 kg

DRUGS (4)
  1. SORAFENIB OR PLACEBO [Suspect]
     Indication: BREAST CANCER METASTATIC
     Dosage: TOTAL DAILY DOSE: 800 MG  UNIT DOSE: 200 MG
     Route: 048
     Dates: start: 20100809, end: 20100809
  2. DOCETAXEL [Suspect]
     Indication: BREAST CANCER METASTATIC
     Route: 042
     Dates: start: 20100809, end: 20100809
  3. ZYPREXA [Concomitant]
     Indication: PSYCHOTIC DISORDER
     Route: 048
  4. STANGYL [Concomitant]
     Indication: PSYCHOTIC DISORDER
     Route: 048

REACTIONS (3)
  - ABDOMINAL PAIN [None]
  - CHOLECYSTECTOMY [None]
  - CHOLELITHIASIS [None]
